FAERS Safety Report 4378767-0 (Version None)
Quarter: 2004Q2

REPORT INFORMATION
  Report Type: 
  Country: None (occurrence: None)
  Receive Date: 20040609
  Receipt Date: 20040521
  Transmission Date: 20050107
  Serious: Yes (Other)
  Sender: FDA-Public Use
  Company Number: US_0405103203

PATIENT
  Age: 25 Year
  Sex: Male

DRUGS (2)
  1. ZYPREXA [Suspect]
  2. PAXIL [Concomitant]

REACTIONS (2)
  - AGGRESSION [None]
  - MURDER [None]
